FAERS Safety Report 9853744 (Version 1)
Quarter: 2014Q1

REPORT INFORMATION
  Report Type: Report from Study
  Country: US (occurrence: US)
  Receive Date: 20140129
  Receipt Date: 20140129
  Transmission Date: 20141002
  Serious: Yes (Death, Hospitalization, Other)
  Sender: FDA-Public Use
  Company Number: US-TEVA-458696USA

PATIENT
  Age: 66 Year
  Sex: Female
  Weight: 91.6 kg

DRUGS (2)
  1. DAUNORUBICIN [Suspect]
     Indication: ACUTE MYELOID LEUKAEMIA
     Dosage: DAYS 1-3
     Route: 042
     Dates: start: 20131220, end: 20131222
  2. CYTARABINE [Suspect]
     Indication: ACUTE MYELOID LEUKAEMIA
     Dosage: DAYS 1-7
     Route: 041
     Dates: start: 20131220, end: 20131226

REACTIONS (1)
  - Acute respiratory distress syndrome [Fatal]
